FAERS Safety Report 25605577 (Version 2)
Quarter: 2025Q4

REPORT INFORMATION
  Report Type: Spontaneous
  Country: US (occurrence: US)
  Receive Date: 20250725
  Receipt Date: 20251114
  Transmission Date: 20260117
  Serious: No
  Sender: SANOFI AVENTIS
  Company Number: US-SA-2025SA209726

PATIENT
  Sex: Male

DRUGS (4)
  1. ELOCTATE [Suspect]
     Active Substance: EFMOROCTOCOG ALFA
     Indication: Factor VIII deficiency
     Dosage: 5300 U, Q5D
     Route: 042
     Dates: start: 201502
  2. ELOCTATE [Suspect]
     Active Substance: EFMOROCTOCOG ALFA
     Indication: Factor VIII deficiency
     Dosage: 5300 U, Q5D
     Route: 042
     Dates: start: 201502
  3. ELOCTATE [Suspect]
     Active Substance: EFMOROCTOCOG ALFA
     Dosage: 5300 U, Q5D
     Route: 042
     Dates: start: 202303
  4. ELOCTATE [Suspect]
     Active Substance: EFMOROCTOCOG ALFA
     Dosage: 5300 U, Q5D
     Route: 042
     Dates: start: 202303

REACTIONS (2)
  - Haemorrhage [Unknown]
  - Treatment noncompliance [Unknown]

NARRATIVE: CASE EVENT DATE: 20240101
